FAERS Safety Report 8324919-4 (Version None)
Quarter: 2012Q2

REPORT INFORMATION
  Report Type: 
  Country: None (occurrence: None)
  Receive Date: 20120427
  Receipt Date: 20120420
  Transmission Date: 20120825
  Serious: Yes (Other)
  Sender: FDA-Public Use
  Company Number: IND1-FR-2011-0010

PATIENT
  Age: 55 Year
  Sex: Male

DRUGS (5)
  1. REMICADE [Suspect]
     Indication: PSORIATIC ARTHROPATHY
     Dosage: 500 MG (6 MG/KG,1X500MG INJECTION EVERY 5-6 WEEKS),INTRAVENOUS
     Route: 042
     Dates: start: 20050101
  2. ESOMEPRAZOLE MAGNESIUM [Suspect]
     Indication: PSORIATIC ARTHROPATHY
     Dosage: 20 MG (20 MG,1 IN 1 D),ORAL
     Route: 048
     Dates: start: 20070101
  3. METHOTREXATE SODIUM [Suspect]
     Indication: PSORIATIC ARTHROPATHY
     Dosage: 0.7143 MG (5 MG,1 IN 1 WK),ORAL
     Route: 048
     Dates: start: 20070101, end: 20110101
  4. INDOMETHACIN [Suspect]
     Indication: PSORIATIC ARTHROPATHY
     Dosage: 25 MG (25 MG,1 IN 1 D),ORAL
     Route: 048
     Dates: start: 20070101
  5. FOLIC ACID [Suspect]
     Indication: PSORIATIC ARTHROPATHY
     Dosage: (1 TABLET A WEEK),ORAL
     Route: 048
     Dates: start: 20070101

REACTIONS (5)
  - HYPOAESTHESIA [None]
  - CHRONIC INFLAMMATORY DEMYELINATING POLYRADICULONEUROPATHY [None]
  - HYPERPROTEINAEMIA [None]
  - HYPERGAMMAGLOBULINAEMIA [None]
  - PARAESTHESIA [None]
